FAERS Safety Report 10219397 (Version 8)
Quarter: 2016Q3

REPORT INFORMATION
  Report Type: Spontaneous
  Country: US (occurrence: US)
  Receive Date: 20140605
  Receipt Date: 20160816
  Transmission Date: 20161109
  Serious: Yes (Hospitalization, Other)
  Sender: FDA-Public Use
  Company Number: US-009507513-1406USA000541

PATIENT
  Sex: Female

DRUGS (6)
  1. CALCIUM CARBONATE. [Concomitant]
     Active Substance: CALCIUM CARBONATE
     Indication: OSTEOPOROSIS
     Dosage: 500 MG, QD
     Route: 065
     Dates: start: 2004
  2. FOSAMAX PLUS D [Suspect]
     Active Substance: ALENDRONATE SODIUM\CHOLECALCIFEROL
     Dosage: 70 MG/2800 IU, QW
     Route: 048
     Dates: start: 20100113, end: 201011
  3. BONIVA [Suspect]
     Active Substance: IBANDRONATE SODIUM
     Indication: OSTEOPOROSIS
     Dosage: 150 MG, QM
     Route: 048
     Dates: start: 201011, end: 201206
  4. VITAMIN D [Concomitant]
     Active Substance: CHOLECALCIFEROL
     Indication: OSTEOPOROSIS
     Dosage: 200 UNITS, DAILY
     Route: 065
     Dates: start: 2004
  5. FOSAMAX PLUS D [Suspect]
     Active Substance: ALENDRONATE SODIUM\CHOLECALCIFEROL
     Indication: OSTEOPOROSIS
     Dosage: 70 MG, QW
     Route: 048
     Dates: start: 2006
  6. FOSAMAX [Suspect]
     Active Substance: ALENDRONATE SODIUM
     Indication: OSTEOPOROSIS
     Dosage: 70 MG, UNK
     Route: 048
     Dates: start: 2004, end: 2006

REACTIONS (10)
  - Balance disorder [Unknown]
  - Hyperlipidaemia [Unknown]
  - Femur fracture [Unknown]
  - Breast cancer [Unknown]
  - Hypertension [Unknown]
  - Bursitis [Unknown]
  - Osteoporosis [Unknown]
  - Fall [Unknown]
  - Hot flush [Unknown]
  - Blood cholesterol increased [Unknown]

NARRATIVE: CASE EVENT DATE: 2008
